FAERS Safety Report 4352418-3 (Version None)
Quarter: 2004Q2

REPORT INFORMATION
  Report Type: 
  Country: None (occurrence: None)
  Receive Date: 20040428
  Receipt Date: 20040413
  Transmission Date: 20050107
  Serious: No
  Sender: FDA-Public Use
  Company Number: 2004SE02037

PATIENT
  Age: 37 Year
  Sex: Female
  Weight: 132 kg

DRUGS (4)
  1. BLOPRESS [Suspect]
     Indication: HYPERTENSION
     Dates: end: 20030613
  2. GLUCOPHAGE [Suspect]
     Indication: DIABETES MELLITUS
     Dosage: 850 MG QD PO
     Route: 048
     Dates: end: 20030613
  3. TRANDATE [Concomitant]
  4. MIXTARD     /DEN/ [Concomitant]

REACTIONS (3)
  - ABORTION SPONTANEOUS [None]
  - BLOOD GLUCOSE INCREASED [None]
  - DRUG EXPOSURE DURING PREGNANCY [None]
